FAERS Safety Report 16657538 (Version 1)
Quarter: 2019Q3

REPORT INFORMATION
  Report Type: Spontaneous
  Country: CH (occurrence: CH)
  Receive Date: 20190801
  Receipt Date: 20190801
  Transmission Date: 20191004
  Serious: Yes (Other)
  Sender: FDA-Public Use
  Company Number: CH-SA-2019SA187072

PATIENT
  Age: 66 Year
  Sex: Male
  Weight: 90 kg

DRUGS (7)
  1. CONCOR [Concomitant]
     Active Substance: BISOPROLOL FUMARATE
     Indication: ATRIAL FIBRILLATION
     Dosage: 2.5 MG
     Route: 048
  2. PREDNISONE. [Concomitant]
     Active Substance: PREDNISONE
     Indication: PROPHYLAXIS
     Dosage: 5 MG
     Route: 048
  3. DOCETAXEL. [Suspect]
     Active Substance: DOCETAXEL
     Indication: HORMONE-REFRACTORY PROSTATE CANCER
     Dosage: 150 UNK, UNK
     Route: 042
     Dates: start: 20190528, end: 20190528
  4. DOCETAXEL. [Suspect]
     Active Substance: DOCETAXEL
     Dosage: 150 UNK, UNK
     Route: 042
     Dates: start: 20190709, end: 20190709
  5. DOCETAXEL. [Suspect]
     Active Substance: DOCETAXEL
     Dosage: 150 UNK, UNK
     Route: 042
     Dates: start: 20190618, end: 20190618
  6. ZANTAC [Concomitant]
     Active Substance: RANITIDINE HYDROCHLORIDE
  7. VITAMIN D3 [Concomitant]
     Active Substance: CHOLECALCIFEROL
     Indication: PROPHYLAXIS
     Dosage: 1000 EQ
     Route: 048

REACTIONS (5)
  - Flushing [Recovered/Resolved]
  - Drug hypersensitivity [Recovering/Resolving]
  - Hypertension [Recovered/Resolved]
  - Dyspnoea [Recovered/Resolved]
  - Throat tightness [Recovered/Resolved]

NARRATIVE: CASE EVENT DATE: 20190618
